FAERS Safety Report 13194302 (Version 1)
Quarter: 2017Q1

REPORT INFORMATION
  Report Type: Spontaneous
  Country: US (occurrence: US)
  Receive Date: 20170207
  Receipt Date: 20170207
  Transmission Date: 20170428
  Serious: No
  Sender: FDA-Public Use
  Company Number: US-JAZZ-2016-US-023798

PATIENT
  Sex: Female

DRUGS (42)
  1. VICKS VAPORUB                      /00055801/ [Concomitant]
  2. ALPRAZOLAM. [Concomitant]
     Active Substance: ALPRAZOLAM
  3. HALLS [Concomitant]
     Active Substance: MENTHOL
  4. XYREM [Suspect]
     Active Substance: SODIUM OXYBATE
     Dosage: 4.5G, BID
     Route: 048
     Dates: start: 200508
  5. MODAFINIL. [Concomitant]
     Active Substance: MODAFINIL
  6. PAROXETINE HCL [Concomitant]
     Active Substance: PAROXETINE HYDROCHLORIDE
  7. SINUS RINSE [Concomitant]
     Active Substance: SODIUM BICARBONATE\SODIUM CHLORIDE
  8. BRINTELLIX [Concomitant]
     Active Substance: VORTIOXETINE HYDROBROMIDE
  9. TETANUS AND DIPHTHERIA TOXOIDS ADSORBED [Concomitant]
     Active Substance: CLOSTRIDIUM TETANI\CLOSTRIDIUM TETANI TOXOID ANTIGEN (FORMALDEHYDE INACTIVATED)\CORYNEBACTERIUM DIPHTHERIAE\CORYNEBACTERIUM DIPHTHERIAE TOXOID ANTIGEN (FORMALDEHYDE INACTIVATED)
  10. AMLODIPINE BESYLATE. [Concomitant]
     Active Substance: AMLODIPINE BESYLATE
  11. BIOTENE                            /03475601/ [Concomitant]
  12. EXCEDRIN EXTRA STRENGTH [Concomitant]
     Active Substance: ACETAMINOPHEN\ASPIRIN\CAFFEINE
  13. LIDOCAINE. [Concomitant]
     Active Substance: LIDOCAINE
  14. NEURONTIN [Concomitant]
     Active Substance: GABAPENTIN
  15. MIRTAZAPINE. [Concomitant]
     Active Substance: MIRTAZAPINE
  16. VITAMIN D                          /00107901/ [Concomitant]
     Active Substance: ERGOCALCIFEROL
  17. PREVIDENT [Concomitant]
     Active Substance: SODIUM FLUORIDE
  18. SIMVASTATIN. [Concomitant]
     Active Substance: SIMVASTATIN
  19. TRAMADOL HCL [Concomitant]
     Active Substance: TRAMADOL HYDROCHLORIDE
  20. GABAPENTIN. [Concomitant]
     Active Substance: GABAPENTIN
  21. AMOXICILLIN. [Concomitant]
     Active Substance: AMOXICILLIN
  22. ELETONE [Concomitant]
  23. LISINOPRIL. [Concomitant]
     Active Substance: LISINOPRIL
  24. OYSTER SHELL CALCIUM + D3 [Concomitant]
  25. SUMATRIPTAN SUCCINATE. [Concomitant]
     Active Substance: SUMATRIPTAN SUCCINATE
  26. XYREM [Suspect]
     Active Substance: SODIUM OXYBATE
     Indication: NARCOLEPSY
     Dosage: 2.25G, BID
     Route: 048
     Dates: start: 200506, end: 2005
  27. GUAIFENESIN. [Concomitant]
     Active Substance: GUAIFENESIN
  28. NEOSPORIN [Concomitant]
     Active Substance: BACITRACIN ZINC\NEOMYCIN SULFATE\POLYMYXIN B SULFATE
  29. METOPROLOL SUCC CT [Concomitant]
  30. WARFARIN SODIUM. [Concomitant]
     Active Substance: WARFARIN SODIUM
  31. ASPIRIN                            /00002701/ [Concomitant]
     Active Substance: ASPIRIN
  32. CELEBREX [Concomitant]
     Active Substance: CELECOXIB
  33. IMODIUM A-D [Concomitant]
     Active Substance: LOPERAMIDE HYDROCHLORIDE
  34. LACTULOSE. [Concomitant]
     Active Substance: LACTULOSE
  35. LEVOTHYROXINE. [Concomitant]
     Active Substance: LEVOTHYROXINE
  36. FLUZONE                            /00780601/ [Concomitant]
     Active Substance: FLUCONAZOLE
  37. ERYTHROMYCIN. [Concomitant]
     Active Substance: ERYTHROMYCIN
  38. LORATADINE. [Concomitant]
     Active Substance: LORATADINE
  39. OMEPRAZOLE. [Concomitant]
     Active Substance: OMEPRAZOLE
  40. XYREM [Suspect]
     Active Substance: SODIUM OXYBATE
     Indication: CATAPLEXY
     Dosage: 3G, BID
     Route: 048
     Dates: start: 200507, end: 2005
  41. FLUTICASONE PROPIONATE. [Concomitant]
     Active Substance: FLUTICASONE PROPIONATE
  42. MAPAP [Concomitant]
     Active Substance: ACETAMINOPHEN

REACTIONS (1)
  - Drug ineffective [Unknown]
